FAERS Safety Report 7818172-5 (Version None)
Quarter: 2011Q4

REPORT INFORMATION
  Report Type: 
  Country: None (occurrence: None)
  Receive Date: 20111017
  Receipt Date: 20111010
  Transmission Date: 20120403
  Serious: Yes (Hospitalization)
  Sender: FDA-Public Use
  Company Number: BR-ABBOTT-09P-020-0604636-00

PATIENT
  Sex: Female
  Weight: 46 kg

DRUGS (2)
  1. HUMIRA [Suspect]
     Route: 058
     Dates: start: 20090801
  2. HUMIRA [Suspect]
     Indication: CROHN'S DISEASE
     Dosage: 200-150MG IN 15 DAYS
     Route: 058

REACTIONS (4)
  - ARTHRALGIA [None]
  - COUGH [None]
  - URINARY TRACT INFECTION [None]
  - PYREXIA [None]
